FAERS Safety Report 4876537-8 (Version None)
Quarter: 2006Q1

REPORT INFORMATION
  Report Type: 
  Country: None (occurrence: None)
  Receive Date: 20060110
  Receipt Date: 20060103
  Transmission Date: 20060701
  Serious: Yes (Other)
  Sender: FDA-Public Use
  Company Number: FR-GLAXOSMITHKLINE-B0405836A

PATIENT
  Age: 9 Year
  Sex: Female

DRUGS (3)
  1. FLIXOTIDE [Suspect]
     Route: 055
  2. RITONAVIR [Suspect]
     Indication: HIV INFECTION
     Route: 065
  3. HIV TREATMENTS (UNSPECIFIED) [Concomitant]
     Indication: HIV INFECTION

REACTIONS (7)
  - CUSHING'S SYNDROME [None]
  - CUSHINGOID [None]
  - DRUG INTERACTION [None]
  - GROWTH RETARDATION [None]
  - MUSCULAR WEAKNESS [None]
  - SKIN STRIAE [None]
  - WEIGHT INCREASED [None]
